FAERS Safety Report 5728799-2 (Version None)
Quarter: 2008Q2

REPORT INFORMATION
  Report Type: 
  Country: None (occurrence: None)
  Receive Date: 20080430
  Receipt Date: 20080417
  Transmission Date: 20081010
  Serious: Yes (Other)
  Sender: FDA-Public Use
  Company Number: 2008010177

PATIENT
  Age: 25 Year
  Sex: Male

DRUGS (3)
  1. LISTERINE (MENTHOL, METHYL SALICYLATE, EUCALYPTOL, THYMOL) [Suspect]
     Dosage: 3 TIMES,ORAL
     Route: 048
     Dates: start: 20080401, end: 20080401
  2. DICLOFENAC [Concomitant]
  3. ACETAMINOPHEN [Concomitant]

REACTIONS (3)
  - FEELING ABNORMAL [None]
  - ORAL PAIN [None]
  - TONGUE BLISTERING [None]
